FAERS Safety Report 6489067-7 (Version None)
Quarter: 2009Q4

REPORT INFORMATION
  Report Type: 
  Country: None (occurrence: None)
  Receive Date: 20091210
  Receipt Date: 20091130
  Transmission Date: 20100525
  Serious: Yes (Other)
  Sender: FDA-Public Use
  Company Number: US-PFIZER INC-2009304335

PATIENT
  Sex: Male
  Weight: 68.027 kg

DRUGS (2)
  1. GABAPENTIN [Suspect]
     Indication: NEUROPATHY PERIPHERAL
     Dosage: 1200 MG AT NIGHT
     Route: 048
  2. FLUOXETINE [Concomitant]
     Indication: THINKING ABNORMAL
     Dosage: 20 MG, 1X/DAY
     Route: 048

REACTIONS (4)
  - BLOOD PRESSURE ABNORMAL [None]
  - CHEST PAIN [None]
  - INSOMNIA [None]
  - PAIN IN EXTREMITY [None]
